FAERS Safety Report 11659485 (Version 1)
Quarter: 2015Q4

REPORT INFORMATION
  Report Type: Spontaneous
  Country: US (occurrence: US)
  Receive Date: 20151026
  Receipt Date: 20151026
  Transmission Date: 20160304
  Serious: No
  Sender: FDA-Public Use
  Company Number: US-BIOGENIDEC-2015BI142589

PATIENT
  Sex: Female

DRUGS (1)
  1. TECFIDERA [Suspect]
     Active Substance: DIMETHYL FUMARATE
     Indication: PRODUCT USED FOR UNKNOWN INDICATION
     Dates: start: 201402

REACTIONS (7)
  - Anaemia [Unknown]
  - Fatigue [Unknown]
  - White blood cell count decreased [Unknown]
  - Dysarthria [Unknown]
  - Hypersomnia [Unknown]
  - Asthenia [Unknown]
  - Memory impairment [Unknown]

NARRATIVE: CASE EVENT DATE: 2014
